FAERS Safety Report 6551040-8 (Version None)
Quarter: 2010Q1

REPORT INFORMATION
  Report Type: 
  Country: None (occurrence: None)
  Receive Date: 20100125
  Receipt Date: 20100115
  Transmission Date: 20100710
  Serious: Yes (Other)
  Sender: FDA-Public Use
  Company Number: US-AMGEN-QUU386176

PATIENT
  Sex: Female

DRUGS (2)
  1. NPLATE [Suspect]
     Indication: IDIOPATHIC THROMBOCYTOPENIC PURPURA
     Dates: start: 20090226, end: 20090924
  2. CORTICOSTEROID NOS [Concomitant]
     Dates: start: 20090210

REACTIONS (6)
  - DRUG INEFFECTIVE [None]
  - EMBOLISM [None]
  - OSTEONECROSIS [None]
  - THERAPEUTIC RESPONSE DECREASED [None]
  - THROMBOCYTOPENIA [None]
  - THROMBOSIS [None]
